FAERS Safety Report 24590742 (Version 1)
Quarter: 2024Q4

REPORT INFORMATION
  Report Type: Spontaneous
  Country: US (occurrence: US)
  Receive Date: 20241107
  Receipt Date: 20241107
  Transmission Date: 20250114
  Serious: No
  Sender: BIOGEN
  Company Number: US-BIOGEN-2024BI01288770

PATIENT
  Sex: Female

DRUGS (1)
  1. QALSODY [Suspect]
     Active Substance: TOFERSEN
     Indication: Amyotrophic lateral sclerosis
     Dosage: DOSE: 15ML
     Route: 050
     Dates: start: 20241003

REACTIONS (2)
  - Injection site swelling [Recovered/Resolved]
  - Injection site erythema [Recovered/Resolved]
